FAERS Safety Report 6211032-5 (Version None)
Quarter: 2009Q2

REPORT INFORMATION
  Report Type: 
  Country: None (occurrence: None)
  Receive Date: 20090602
  Receipt Date: 20090331
  Transmission Date: 20091009
  Serious: No
  Sender: FDA-Public Use
  Company Number: US-BAYER-200916618NA

PATIENT
  Age: 60 Year
  Sex: Male

DRUGS (3)
  1. LEVITRA [Suspect]
     Indication: ERECTILE DYSFUNCTION
     Dosage: UNIT DOSE: 10 MG
     Dates: start: 20090319
  2. LEVITRA [Suspect]
     Dosage: UNIT DOSE: 10 MG
     Dates: start: 20090325
  3. LEVITRA [Suspect]
     Dosage: UNIT DOSE: 10 MG
     Dates: start: 20090330

REACTIONS (3)
  - HEADACHE [None]
  - MUSCULAR WEAKNESS [None]
  - MYALGIA [None]
